FAERS Safety Report 9539616 (Version 1)
Quarter: 2013Q1

REPORT INFORMATION
  Report Type: Spontaneous
  Country: US (occurrence: None)
  Receive Date: 20130313
  Receipt Date: 20130313
  Transmission Date: 20140127
  Serious: Yes (Other)
  Sender: FDA-Public Use
  Company Number: 2012P1022213

PATIENT
  Age: 97 Year
  Sex: Female

DRUGS (1)
  1. AMOXICILLIN + CLAVULANATE POTASSIUM [Suspect]
     Indication: INFECTION
     Route: 048
     Dates: start: 20120503

REACTIONS (4)
  - Confusional state [None]
  - Lip discolouration [None]
  - Increased upper airway secretion [None]
  - General physical condition abnormal [None]
